FAERS Safety Report 9892216 (Version 2)
Quarter: 2014Q1

REPORT INFORMATION
  Report Type: Report from Study
  Country: JP (occurrence: JP)
  Receive Date: 20140212
  Receipt Date: 20140226
  Transmission Date: 20141002
  Serious: Yes (Hospitalization, Other)
  Sender: FDA-Public Use
  Company Number: JP-TAKEDA-2014TJP001384

PATIENT
  Age: 66 Year
  Sex: Female
  Weight: 40 kg

DRUGS (4)
  1. ALOGLIPTIN [Suspect]
     Indication: TYPE 2 DIABETES MELLITUS
     Dosage: 25 MG, QD
     Route: 048
     Dates: start: 20121010, end: 20130726
  2. METGLUCO [Concomitant]
     Indication: TYPE 2 DIABETES MELLITUS
     Dosage: 500 MG, 1 DAYS
     Route: 048
     Dates: end: 20130420
  3. SIMVASTATIN [Concomitant]
     Dosage: 5 MG, 1 DAYS
     Route: 048
     Dates: end: 20121101
  4. CRESTOR [Concomitant]
     Dosage: 2.5 MG, 1 DAYS
     Route: 048
     Dates: start: 20121102

REACTIONS (1)
  - Lung neoplasm malignant [Unknown]
